FAERS Safety Report 19475510 (Version 3)
Quarter: 2021Q4

REPORT INFORMATION
  Report Type: Report from Study
  Country: FR (occurrence: FR)
  Receive Date: 20210630
  Receipt Date: 20211224
  Transmission Date: 20220303
  Serious: Yes (Death, Hospitalization, Other)
  Sender: FDA-Public Use
  Company Number: FR-BRISTOL-MYERS SQUIBB COMPANY-BMS-2021-061809

PATIENT
  Age: 69 Year
  Sex: Female
  Weight: 47 kg

DRUGS (3)
  1. NIVOLUMAB [Suspect]
     Active Substance: NIVOLUMAB
     Indication: Sarcoma
     Dosage: 135 MILLIGRAM, Q2WK
     Route: 042
     Dates: start: 20210608, end: 20210621
  2. IPILIMUMAB [Suspect]
     Active Substance: IPILIMUMAB
     Indication: Sarcoma
     Dosage: 45 MILLIGRAM, Q2WK
     Route: 042
     Dates: start: 20210608, end: 20210621
  3. ASPIRIN SODIUM [Concomitant]
     Active Substance: ASPIRIN SODIUM
     Indication: Product used for unknown indication
     Dosage: 75 MILLIGRAM
     Route: 048

REACTIONS (2)
  - Death [Fatal]
  - General physical health deterioration [Not Recovered/Not Resolved]

NARRATIVE: CASE EVENT DATE: 20210621
